FAERS Safety Report 7081407-3 (Version None)
Quarter: 2010Q4

REPORT INFORMATION
  Report Type: 
  Country: None (occurrence: None)
  Receive Date: 20101103
  Receipt Date: 20101025
  Transmission Date: 20110411
  Serious: Yes (Hospitalization)
  Sender: FDA-Public Use
  Company Number: JP-ABBOTT-10P-087-0665979-00

PATIENT
  Sex: Female
  Weight: 49 kg

DRUGS (16)
  1. HUMIRA [Suspect]
     Indication: RHEUMATOID ARTHRITIS
     Route: 058
     Dates: start: 20100122, end: 20100625
  2. SALAZOSULFAPYRIDINE [Concomitant]
     Indication: RHEUMATOID ARTHRITIS
     Dates: start: 20091222, end: 20100625
  3. PREDNISOLONE [Concomitant]
     Indication: RHEUMATOID ARTHRITIS
     Route: 048
     Dates: start: 20100108, end: 20100625
  4. MISOPROSTOL [Concomitant]
     Indication: PROPHYLAXIS
     Dates: start: 20091222, end: 20100625
  5. MISOPROSTOL [Concomitant]
     Indication: GASTROINTESTINAL DISORDER
  6. OMEPRAZOLE [Concomitant]
     Indication: PROPHYLAXIS
     Dates: start: 20100108, end: 20100625
  7. OMEPRAZOLE [Concomitant]
     Indication: GASTROINTESTINAL DISORDER
  8. DICLOFENAC SODIUM [Concomitant]
     Indication: RHEUMATOID ARTHRITIS
     Dates: start: 20100108, end: 20100625
  9. LIMAPROST ALFADEX [Concomitant]
     Indication: PRODUCT USED FOR UNKNOWN INDICATION
     Dates: start: 20100409, end: 20100625
  10. MECOBALAMIN [Concomitant]
     Indication: PRODUCT USED FOR UNKNOWN INDICATION
     Dates: start: 20100528, end: 20100625
  11. TOCOPHEROL CONCENTRATE CAP [Concomitant]
     Indication: PRODUCT USED FOR UNKNOWN INDICATION
     Dates: start: 20100528, end: 20100625
  12. DIGESTIVE ENZYME PREPARATIONS [Concomitant]
     Indication: PROPHYLAXIS
     Dates: start: 20100514, end: 20100625
  13. DIGESTIVE ENZYME PREPARATIONS [Concomitant]
     Indication: GASTROINTESTINAL DISORDER
  14. MOSAPRIDE CITRATE [Concomitant]
     Indication: PROPHYLAXIS
     Dates: start: 20100514, end: 20100625
  15. MOSAPRIDE CITRATE [Concomitant]
     Indication: GASTROINTESTINAL DISORDER
  16. LOXOPROFEN SODIUM HYDRATE [Concomitant]
     Indication: RHEUMATOID ARTHRITIS
     Dates: start: 20091222, end: 20100625

REACTIONS (1)
  - CAUDA EQUINA SYNDROME [None]
